FAERS Safety Report 5287115-3 (Version None)
Quarter: 2007Q2

REPORT INFORMATION
  Report Type: 
  Country: None (occurrence: None)
  Receive Date: 20070404
  Receipt Date: 20061215
  Transmission Date: 20071010
  Serious: Yes (Other)
  Sender: FDA-Public Use
  Company Number: US-PFIZER INC-2006154476

PATIENT
  Age: 66 Year
  Weight: 72.6 kg

DRUGS (1)
  1. LYRICA [Suspect]
     Indication: RADICULAR PAIN

REACTIONS (2)
  - IDIOPATHIC THROMBOCYTOPENIC PURPURA [None]
  - PURPURA [None]
